FAERS Safety Report 6644056-4 (Version None)
Quarter: 2010Q1

REPORT INFORMATION
  Report Type: 
  Country: None (occurrence: None)
  Receive Date: 20100322
  Receipt Date: 20100309
  Transmission Date: 20100710
  Serious: Yes (Hospitalization, Other)
  Sender: FDA-Public Use
  Company Number: US-ELI_LILLY_AND_COMPANY-US201003003345

PATIENT
  Age: 74 Year
  Sex: Female

DRUGS (8)
  1. CYMBALTA [Suspect]
     Indication: DEPRESSION
     Dosage: 30 MG, DAILY (1/D)
     Dates: start: 20070101, end: 20090101
  2. CYMBALTA [Suspect]
     Dosage: 30 MG, OTHER
     Dates: start: 20090101, end: 20100201
  3. CYMBALTA [Suspect]
     Dosage: 30 MG, DAILY (1/D)
     Dates: start: 20100201
  4. CELEBREX [Concomitant]
  5. CRESTOR [Concomitant]
  6. FEMARA [Concomitant]
  7. ASPIRIN LOW [Concomitant]
  8. TYLENOL (CAPLET) [Concomitant]
     Dosage: UNK, AS NEEDED

REACTIONS (10)
  - BREAST CANCER [None]
  - DISTURBANCE IN ATTENTION [None]
  - FEELING ABNORMAL [None]
  - FIBROMA [None]
  - INTENTIONAL DRUG MISUSE [None]
  - LETHARGY [None]
  - MEMORY IMPAIRMENT [None]
  - MICTURITION URGENCY [None]
  - SOMNOLENCE [None]
  - TINNITUS [None]
